FAERS Safety Report 10342067 (Version 1)
Quarter: 2014Q3

REPORT INFORMATION
  Report Type: Spontaneous
  Country: CA (occurrence: CA)
  Receive Date: 20140725
  Receipt Date: 20140725
  Transmission Date: 20150326
  Serious: Yes (Other)
  Sender: FDA-Public Use
  Company Number: CA-NOVOPROD-416954

PATIENT
  Age: 52 Year
  Sex: Female

DRUGS (1)
  1. VAGIFEM? 10 [Suspect]
     Active Substance: ESTRADIOL HEMIHYDRATE
     Indication: PRODUCT USED FOR UNKNOWN INDICATION
     Dosage: 10 UG, QD
     Route: 065

REACTIONS (1)
  - Oedema peripheral [Unknown]
